FAERS Safety Report 4423673-6 (Version None)
Quarter: 2004Q3

REPORT INFORMATION
  Report Type: 
  Country: None (occurrence: None)
  Receive Date: 20040714
  Receipt Date: 20040512
  Transmission Date: 20050211
  Serious: Yes (Other)
  Sender: FDA-Public Use
  Company Number: HQWYE897914MAY04

PATIENT
  Age: 81 Year
  Sex: Female
  Weight: 77.18 kg

DRUGS (2)
  1. ALAVERT [Suspect]
     Indication: THROAT IRRITATION
     Dosage: 1 TAB;ET 1X PER 1 DAY; ORAL
     Route: 048
     Dates: start: 20040512, end: 20040512
  2. SYNTHROID [Concomitant]

REACTIONS (1)
  - DIARRHOEA [None]
